FAERS Safety Report 7027463-X (Version None)
Quarter: 2010Q4

REPORT INFORMATION
  Report Type: 
  Country: None (occurrence: None)
  Receive Date: 20101001
  Receipt Date: 20101001
  Transmission Date: 20110411
  Serious: Yes (Other)
  Sender: FDA-Public Use
  Company Number: None

PATIENT
  Age: 59 Year
  Sex: Female
  Weight: 94.3482 kg

DRUGS (2)
  1. TOPIRAMATE [Suspect]
     Indication: HEADACHE
     Dosage: 25MG/DAYX6 DAYS; 50MG/DAY AFTER PO
     Route: 048
     Dates: start: 20100831, end: 20100913
  2. CYMBALTA [Suspect]
     Indication: MAJOR DEPRESSION
     Dosage: 30MG; 60MG FROM 8/11/2010 DAILY HS PO
     Route: 048
     Dates: start: 20100603, end: 20100927

REACTIONS (14)
  - ABNORMAL FAECES [None]
  - BALANCE DISORDER [None]
  - COLD SWEAT [None]
  - DEPRESSED LEVEL OF CONSCIOUSNESS [None]
  - DIPLOPIA [None]
  - DISORIENTATION [None]
  - DYSPHAGIA [None]
  - FAECES DISCOLOURED [None]
  - FEELING JITTERY [None]
  - MOOD SWINGS [None]
  - SLEEP DISORDER [None]
  - SPEECH DISORDER [None]
  - SUICIDAL IDEATION [None]
  - VISION BLURRED [None]
